FAERS Safety Report 6539202-7 (Version None)
Quarter: 2010Q1

REPORT INFORMATION
  Report Type: 
  Country: None (occurrence: None)
  Receive Date: 20100115
  Receipt Date: 20100108
  Transmission Date: 20100710
  Serious: Yes (Other)
  Sender: FDA-Public Use
  Company Number: CA-JNJFOC-20100103499

PATIENT
  Sex: Female
  Weight: 52 kg

DRUGS (2)
  1. REMICADE [Suspect]
     Route: 042
  2. REMICADE [Suspect]
     Indication: CROHN'S DISEASE
     Dosage: 68 INFUSIONS ON UNSPECIFIED DATES
     Route: 042

REACTIONS (5)
  - BLOOD PRESSURE INCREASED [None]
  - CHEST PAIN [None]
  - DYSPNOEA [None]
  - ELECTROCARDIOGRAM ABNORMAL [None]
  - INFUSION RELATED REACTION [None]
